FAERS Safety Report 21064215 (Version 3)
Quarter: 2022Q3

REPORT INFORMATION
  Report Type: Spontaneous
  Country: US (occurrence: None)
  Receive Date: 20220711
  Receipt Date: 20220810
  Transmission Date: 20221026
  Serious: No
  Sender: FDA-Public Use
  Company Number: US-ROCHE-3133780

PATIENT
  Sex: Female

DRUGS (2)
  1. RITUXAN [Suspect]
     Active Substance: RITUXIMAB
     Indication: Systemic lupus erythematosus
     Route: 041
     Dates: start: 202202
  2. PROLIA [Concomitant]
     Active Substance: DENOSUMAB

REACTIONS (5)
  - Nasal pruritus [Unknown]
  - Throat irritation [Unknown]
  - Oxygen saturation decreased [Unknown]
  - Palpitations [Unknown]
  - Off label use [Unknown]
